FAERS Safety Report 10044728 (Version 1)
Quarter: 2014Q1

REPORT INFORMATION
  Report Type: Spontaneous
  Country: PT (occurrence: PT)
  Receive Date: 20140328
  Receipt Date: 20140328
  Transmission Date: 20141002
  Serious: Yes (Other)
  Sender: FDA-Public Use
  Company Number: PT-ASTRAZENECA-2014SE19779

PATIENT
  Age: 25 Year
  Sex: Female

DRUGS (3)
  1. BUDESONIDE [Suspect]
     Route: 055
  2. FLUTICASONE [Suspect]
  3. BECLOMETHASONE [Suspect]

REACTIONS (1)
  - Dyspnoea [Unknown]
